FAERS Safety Report 8270078-6 (Version None)
Quarter: 2012Q1

REPORT INFORMATION
  Report Type: 
  Country: None (occurrence: None)
  Receive Date: 20120327
  Receipt Date: 20100427
  Transmission Date: 20120608
  Serious: Yes (Other)
  Sender: FDA-Public Use
  Company Number: PHEH2010US01863

PATIENT
  Age: 12 Year
  Sex: Female

DRUGS (5)
  1. GLEEVEC [Suspect]
     Indication: CHRONIC MYELOID LEUKAEMIA
     Dosage: 400 MG/DAY, ORAL, 300 MG/DAY
     Route: 048
     Dates: end: 20091027
  2. GLEEVEC [Suspect]
     Indication: CHRONIC MYELOID LEUKAEMIA
     Dosage: 400 MG/DAY, ORAL, 300 MG/DAY
     Route: 048
     Dates: start: 20091013, end: 20091026
  3. GLEEVEC [Suspect]
     Indication: CHRONIC MYELOID LEUKAEMIA
     Dosage: 400 MG/DAY, ORAL, 300 MG/DAY
     Route: 048
     Dates: start: 20100105
  4. GLEEVEC [Suspect]
     Indication: CHRONIC MYELOID LEUKAEMIA
     Dosage: 400 MG/DAY, ORAL, 300 MG/DAY
     Route: 048
     Dates: start: 20091208
  5. GLEEVEC [Suspect]
     Indication: CHRONIC MYELOID LEUKAEMIA
     Dosage: 400 MG/DAY, ORAL, 300 MG/DAY
     Route: 048
     Dates: start: 20090825, end: 20091012

REACTIONS (3)
  - PLATELET COUNT DECREASED [None]
  - INCORRECT DOSE ADMINISTERED [None]
  - NEUTROPENIA [None]
